FAERS Safety Report 14291783 (Version 1)
Quarter: 2017Q4

REPORT INFORMATION
  Report Type: Spontaneous
  Country: NL (occurrence: NL)
  Receive Date: 20171215
  Receipt Date: 20171215
  Transmission Date: 20180321
  Serious: Yes (Other)
  Sender: FDA-Public Use
  Company Number: NL-WEST-WARD PHARMACEUTICALS CORP.-NL-H14001-17-04929

PATIENT
  Age: 54 Year
  Sex: Female
  Weight: 92 kg

DRUGS (8)
  1. NAPROXEN. [Concomitant]
     Active Substance: NAPROXEN
     Indication: PRODUCT USED FOR UNKNOWN INDICATION
     Dosage: 1 X PER DAG 250 MG EENMALIG GIFT
     Dates: start: 20171015
  2. ONDANSETRON [Concomitant]
     Active Substance: ONDANSETRON
     Indication: PRODUCT USED FOR UNKNOWN INDICATION
     Dosage: ZO NODIG 4X PER DAG 4MG ; AS NECESSARY
     Route: 065
     Dates: start: 20171017
  3. AMOXICILLIN. [Concomitant]
     Active Substance: AMOXICILLIN
     Indication: PRODUCT USED FOR UNKNOWN INDICATION
     Dosage: 6 X PER DAG 2000 MG
     Route: 065
     Dates: start: 20171008
  4. CEFTRIAXON [Suspect]
     Active Substance: CEFTRIAXONE
     Indication: PRODUCT USED FOR UNKNOWN INDICATION
     Dosage: 2 X PER DAG 1 INFUUS
     Route: 065
     Dates: start: 20171008, end: 20171017
  5. CELECOXIB. [Concomitant]
     Active Substance: CELECOXIB
     Indication: PRODUCT USED FOR UNKNOWN INDICATION
     Dosage: 2 X PER DAG 100 MG
     Route: 065
     Dates: start: 20171008
  6. PARACETAMOL [Concomitant]
     Active Substance: ACETAMINOPHEN
     Indication: PRODUCT USED FOR UNKNOWN INDICATION
     Dosage: 4X PER DAG 1000 MG
     Route: 065
     Dates: start: 20171017
  7. MORPHINE [Concomitant]
     Active Substance: MORPHINE
     Indication: PRODUCT USED FOR UNKNOWN INDICATION
     Dosage: ZO NODIG 4X PER DAG 5MG INDIEN PARACETAMOL ONVOLDO ; AS NECESSARY
     Route: 065
     Dates: start: 20171015
  8. PIRITRAMIDE [Concomitant]
     Active Substance: PIRITRAMIDE
     Indication: PRODUCT USED FOR UNKNOWN INDICATION
     Dosage: ZO NODIG 4X PER DAG 10 MG ; AS NECESSARY
     Route: 065
     Dates: start: 20171017

REACTIONS (1)
  - Renal failure [Recovered/Resolved]

NARRATIVE: CASE EVENT DATE: 20171015
